FAERS Safety Report 19458712 (Version 1)
Quarter: 2021Q2

REPORT INFORMATION
  Report Type: Spontaneous
  Country: GB (occurrence: GB)
  Receive Date: 20210624
  Receipt Date: 20210624
  Transmission Date: 20210717
  Serious: Yes (Other)
  Sender: FDA-Public Use
  Company Number: GB-MYLANLABS-2021M1036703

PATIENT
  Age: 49 Year
  Sex: Female
  Weight: 70 kg

DRUGS (7)
  1. CLINDAMYCIN. [Suspect]
     Active Substance: CLINDAMYCIN
     Indication: PRODUCT USED FOR UNKNOWN INDICATION
     Dosage: FOR 7 DAYS
     Dates: start: 20210607
  2. DOXYCYCLINE. [Concomitant]
     Active Substance: DOXYCYCLINE
     Dosage: 2 DOSAGE FORM, QD
     Dates: start: 20210608, end: 20210615
  3. HYDROXYCHLOROQUINE SULFATE. [Concomitant]
     Active Substance: HYDROXYCHLOROQUINE SULFATE
     Dosage: 200MG BD
     Dates: start: 20210322
  4. METHOTREXATE. [Concomitant]
     Active Substance: METHOTREXATE
     Dosage: ON FRIDAYS
     Dates: start: 20210322
  5. DEPO?MEDRONE [Concomitant]
     Active Substance: METHYLPREDNISOLONE
     Dosage: UNK
     Dates: start: 20210322
  6. PREDNISOLONE. [Concomitant]
     Active Substance: PREDNISOLONE
     Dosage: 6 DOSAGE FORM, QD
     Dates: start: 20210609, end: 20210614
  7. FOLIC ACID. [Concomitant]
     Active Substance: FOLIC ACID
     Dosage: 5MG 6/7 PER WEEK
     Dates: start: 20210322

REACTIONS (3)
  - Rash erythematous [Recovering/Resolving]
  - Pruritus [Unknown]
  - Erythema [Unknown]

NARRATIVE: CASE EVENT DATE: 20210615
